FAERS Safety Report 17049097 (Version 6)
Quarter: 2020Q1

REPORT INFORMATION
  Report Type: Report from Study
  Country: DE (occurrence: DE)
  Receive Date: 20191119
  Receipt Date: 20200219
  Transmission Date: 20200409
  Serious: Yes (Other)
  Sender: FDA-Public Use
  Company Number: DE-PFIZER INC-2019494840

PATIENT
  Age: 10 Year
  Sex: Male

DRUGS (7)
  1. SOMATROPIN. [Suspect]
     Active Substance: SOMATROPIN
     Indication: HEREDITARY HYPOPHOSPHATAEMIC RICKETS
     Dosage: 1.8 MG, 1X/DAY (10 MG/1.5 ML SOLUTION FOR INJECTION)
     Route: 058
     Dates: start: 20100909
  2. SOMATROPIN. [Suspect]
     Active Substance: SOMATROPIN
     Dosage: 1 MG, 1X/DAY
     Route: 058
     Dates: start: 20100909
  3. NATRIUMGLYCEROPHOSPHAT [Concomitant]
     Indication: PHOSPHORUS METABOLISM DISORDER
     Dosage: (4X) 5 ML, QD
     Route: 048
     Dates: start: 20081013, end: 20170817
  4. ROCALTROL [Concomitant]
     Active Substance: CALCITRIOL
     Indication: PROPHYLAXIS
     Dosage: 0.2 UG, QD
     Route: 048
     Dates: start: 20090129, end: 20111020
  5. MIMPARA [Concomitant]
     Active Substance: CINACALCET HYDROCHLORIDE
     Indication: PROPHYLAXIS
     Dosage: 10 MG, QD
     Route: 048
     Dates: start: 20100204, end: 20170824
  6. VIGANTOLETTEN [Concomitant]
     Active Substance: CHOLECALCIFEROL
     Indication: HEREDITARY HYPOPHOSPHATAEMIC RICKETS
     Dosage: 1 DF, QD
     Route: 048
     Dates: start: 20081013, end: 20131128
  7. VIGANTOLETTEN [Concomitant]
     Active Substance: CHOLECALCIFEROL
     Indication: PROPHYLAXIS

REACTIONS (4)
  - Hypermetropia [Not Recovered/Not Resolved]
  - Idiopathic intracranial hypertension [Recovering/Resolving]
  - Headache [Recovered/Resolved]
  - Vomiting [Recovered/Resolved]

NARRATIVE: CASE EVENT DATE: 201103
